FAERS Safety Report 24910038 (Version 1)
Quarter: 2025Q1

REPORT INFORMATION
  Report Type: Spontaneous
  Country: PK (occurrence: None)
  Receive Date: 20250131
  Receipt Date: 20250131
  Transmission Date: 20250408
  Serious: Yes (Other)
  Sender: UNICHEM
  Company Number: PK-Unichem Pharmaceuticals (USA) Inc-UCM202501-000144

PATIENT
  Age: 59 Year
  Sex: Male

DRUGS (3)
  1. LOSARTAN [Suspect]
     Active Substance: LOSARTAN
     Indication: Hypertension
  2. ATORVASTATIN [Suspect]
     Active Substance: ATORVASTATIN
     Indication: Myocardial ischaemia
  3. ASPIRIN [Suspect]
     Active Substance: ASPIRIN
     Indication: Myocardial ischaemia

REACTIONS (1)
  - Acute disseminated encephalomyelitis [Recovered/Resolved]
